FAERS Safety Report 22319126 (Version 1)
Quarter: 2023Q2

REPORT INFORMATION
  Report Type: Spontaneous
  Country: DE (occurrence: DE)
  Receive Date: 20230515
  Receipt Date: 20230515
  Transmission Date: 20230722
  Serious: Yes (Other)
  Sender: FDA-Public Use
  Company Number: DE-PFIZER INC-202300188396

PATIENT
  Age: 61 Year
  Sex: Male

DRUGS (1)
  1. CRIZOTINIB [Suspect]
     Active Substance: CRIZOTINIB
     Indication: Chemotherapy
     Dosage: UNK
     Dates: start: 201402, end: 2015

REACTIONS (5)
  - Second primary malignancy [Unknown]
  - Malignant peritoneal neoplasm [Unknown]
  - Ascites [Unknown]
  - Oedema peripheral [Unknown]
  - Neoplasm progression [Unknown]

NARRATIVE: CASE EVENT DATE: 20150201
